FAERS Safety Report 25106108 (Version 1)
Quarter: 2025Q1

REPORT INFORMATION
  Report Type: Spontaneous
  Country: US (occurrence: None)
  Receive Date: 20250320
  Receipt Date: 20250320
  Transmission Date: 20250408
  Serious: No
  Sender: FDA-CTU
  Company Number: None

PATIENT
  Age: 75 Year
  Sex: Male
  Weight: 115 kg

DRUGS (1)
  1. RIVAROXABAN [Suspect]
     Active Substance: RIVAROXABAN
     Indication: Atrial fibrillation
     Dosage: FREQUENCY : DAILY;?
     Route: 048
     Dates: start: 20210111, end: 20240725

REACTIONS (7)
  - Upper gastrointestinal haemorrhage [None]
  - Malaise [None]
  - Asthenia [None]
  - Dizziness [None]
  - Vomiting [None]
  - Discoloured vomit [None]
  - Gastritis [None]

NARRATIVE: CASE EVENT DATE: 20240725
